FAERS Safety Report 23620000 (Version 2)
Quarter: 2024Q1

REPORT INFORMATION
  Report Type: Spontaneous
  Country: US (occurrence: US)
  Receive Date: 20240312
  Receipt Date: 20240326
  Transmission Date: 20240409
  Serious: Yes (Life-Threatening, Hospitalization)
  Sender: FDA-Public Use
  Company Number: US-TEVA-VS-3165654

PATIENT
  Age: 71 Year
  Sex: Female

DRUGS (8)
  1. EPINEPHRINE [Suspect]
     Active Substance: EPINEPHRINE
     Indication: Shock
     Route: 065
  2. METOPROLOL TARTRATE [Suspect]
     Active Substance: METOPROLOL TARTRATE
     Indication: Hypertension
     Route: 065
  3. ATROPINE [Suspect]
     Active Substance: ATROPINE\ATROPINE SULFATE
     Indication: Shock
     Route: 065
  4. NOREPINEPHRINE [Suspect]
     Active Substance: NOREPINEPHRINE\NOREPINEPHRINE BITARTRATE
     Indication: Shock
     Route: 065
  5. INSULIN NOS [Suspect]
     Active Substance: INSULIN NOS
     Indication: Shock
     Dosage: INFUSION
     Route: 065
  6. CALCIUM GLUCONATE [Suspect]
     Active Substance: CALCIUM GLUCONATE
     Indication: Shock
     Route: 065
  7. VASOPRESSIN [Suspect]
     Active Substance: VASOPRESSIN
     Indication: Shock
     Route: 065
  8. GLUCAGON [Suspect]
     Active Substance: GLUCAGON\GLUCAGON HYDROCHLORIDE\WATER
     Indication: Shock
     Route: 065

REACTIONS (4)
  - Shock [Recovering/Resolving]
  - Toxicity to various agents [Unknown]
  - Intentional overdose [Unknown]
  - Drug ineffective [Unknown]
